FAERS Safety Report 10256001 (Version 2)
Quarter: 2014Q4

REPORT INFORMATION
  Report Type: Spontaneous
  Country: IT (occurrence: IT)
  Receive Date: 20140624
  Receipt Date: 20141007
  Transmission Date: 20150528
  Serious: Yes (Hospitalization, Other)
  Sender: FDA-Public Use
  Company Number: IT-GLAXOSMITHKLINE-B1006799A

PATIENT
  Age: 52 Year
  Sex: Male

DRUGS (2)
  1. PROPAFENONE. [Suspect]
     Active Substance: PROPAFENONE
     Indication: PALPITATIONS
     Route: 048
     Dates: start: 20140611, end: 20140611
  2. FLECAINIDE ACETATE. [Concomitant]
     Active Substance: FLECAINIDE ACETATE

REACTIONS (2)
  - Supraventricular tachycardia [Recovered/Resolved]
  - Drug administration error [Recovered/Resolved]

NARRATIVE: CASE EVENT DATE: 20140611
